FAERS Safety Report 10422123 (Version 1)
Quarter: 2014Q3

REPORT INFORMATION
  Report Type: Spontaneous
  Country: ZM (occurrence: ZM)
  Receive Date: 20140901
  Receipt Date: 20140901
  Transmission Date: 20150326
  Serious: Yes (Congenital Anomaly)
  Sender: FDA-Public Use
  Company Number: ZM-CIPLA LTD.-2014ZM01175

PATIENT

DRUGS (12)
  1. STAVUDINE. [Suspect]
     Active Substance: STAVUDINE
     Route: 064
  2. INDINAVIR [Suspect]
     Active Substance: INDINAVIR
     Route: 064
  3. EMTRICITABINE [Suspect]
     Active Substance: EMTRICITABINE
     Route: 064
  4. ZIDOVUDINE. [Suspect]
     Active Substance: ZIDOVUDINE
     Route: 064
  5. EFAVIRENZ [Suspect]
     Active Substance: EFAVIRENZ
     Route: 064
  6. ABACAVIR [Suspect]
     Active Substance: ABACAVIR
     Route: 064
  7. DIDANOSINE. [Suspect]
     Active Substance: DIDANOSINE
     Route: 064
  8. TENOFOVIR DISOFOXIL FUMARATE [Suspect]
     Active Substance: TENOFOVIR DISOPROXIL FUMARATE
     Route: 064
  9. NEVIRAPINE. [Suspect]
     Active Substance: NEVIRAPINE
     Route: 064
  10. LOPINAVIR AND  RITONAVIR [Suspect]
     Active Substance: LOPINAVIR\RITONAVIR
     Route: 064
  11. SAQUINAVIR [Suspect]
     Active Substance: SAQUINAVIR
     Route: 064
  12. LAMIVUDINE. [Suspect]
     Active Substance: LAMIVUDINE
     Route: 064

REACTIONS (1)
  - Congenital abdominal hernia [Unknown]
